FAERS Safety Report 13974568 (Version 2)
Quarter: 2017Q3

REPORT INFORMATION
  Report Type: Report from Study
  Country: CA (occurrence: CA)
  Receive Date: 20170915
  Receipt Date: 20170922
  Transmission Date: 20171128
  Serious: Yes (Disabling)
  Sender: FDA-Public Use
  Company Number: CA-AMGEN-CANSL2017138140

PATIENT
  Age: 69 Year
  Sex: Male
  Weight: 71.1 kg

DRUGS (1)
  1. KYPROLIS [Suspect]
     Active Substance: CARFILZOMIB
     Indication: PLASMA CELL MYELOMA
     Dosage: 51 MG, UNK ON DAY 1, 2, 8, 9, 15 AND 16
     Route: 042
     Dates: start: 20170809

REACTIONS (5)
  - Abdominal pain [Recovering/Resolving]
  - Vomiting [Unknown]
  - Contusion [Not Recovered/Not Resolved]
  - Paraesthesia [Not Recovered/Not Resolved]
  - Flatulence [Unknown]

NARRATIVE: CASE EVENT DATE: 2017
